FAERS Safety Report 5611249-4 (Version None)
Quarter: 2008Q1

REPORT INFORMATION
  Report Type: 
  Country: None (occurrence: None)
  Receive Date: 20080201
  Receipt Date: 20080124
  Transmission Date: 20080703
  Serious: Yes (Hospitalization)
  Sender: FDA-Public Use
  Company Number: PHBS2008PE01270

PATIENT
  Age: 53 Year
  Sex: Female

DRUGS (1)
  1. ACLASTA [Suspect]
     Indication: OSTEOPOROSIS
     Route: 042
     Dates: start: 20071207

REACTIONS (5)
  - ARTHRALGIA [None]
  - BODY TEMPERATURE INCREASED [None]
  - FIBROMYALGIA [None]
  - HEADACHE [None]
  - MYALGIA [None]
